FAERS Safety Report 8007880-1 (Version None)
Quarter: 2011Q4

REPORT INFORMATION
  Report Type: 
  Country: None (occurrence: None)
  Receive Date: 20111222
  Receipt Date: 20111222
  Transmission Date: 20120403
  Serious: Yes (Other)
  Sender: FDA-Public Use
  Company Number: None

PATIENT
  Sex: Female
  Weight: 58.0604 kg

DRUGS (2)
  1. TRAMADOL HCL [Suspect]
     Indication: BACK PAIN
     Dosage: 50 MG 2 TO 3 TIMES A DAY ORAL
     Route: 048
     Dates: start: 20101201, end: 20111101
  2. TRAMADOL HCL [Suspect]
     Indication: NECK PAIN
     Dosage: 50 MG 2 TO 3 TIMES A DAY ORAL
     Route: 048
     Dates: start: 20101201, end: 20111101

REACTIONS (10)
  - MALAISE [None]
  - INFLUENZA LIKE ILLNESS [None]
  - INSOMNIA [None]
  - CONSTIPATION [None]
  - CHILLS [None]
  - DEPRESSION [None]
  - ELECTRIC SHOCK [None]
  - NAUSEA [None]
  - SPINAL FUSION SURGERY [None]
  - COLITIS MICROSCOPIC [None]
